FAERS Safety Report 23656782 (Version 2)
Quarter: 2024Q2

REPORT INFORMATION
  Report Type: Report from Study
  Country: US (occurrence: US)
  Receive Date: 20240321
  Receipt Date: 20240405
  Transmission Date: 20240716
  Serious: Yes (Hospitalization)
  Sender: FDA-Public Use
  Company Number: US-ORPHANEU-2024001722

PATIENT

DRUGS (19)
  1. CARBAGLU [Suspect]
     Active Substance: CARGLUMIC ACID
     Indication: Propionic acidaemia
     Dosage: 1000 MG, BID (DISSOLVE 5 TABLETS IN 2.5 ML WATER/ TABLET)
     Dates: start: 20200905
  2. CARBAGLU [Suspect]
     Active Substance: CARGLUMIC ACID
     Dosage: 1000 MG, BID (DISSOLVE 5 TABLETS IN 2.5 ML WATER/ TABLET)
     Dates: start: 20200905
  3. LACTULOSE [Concomitant]
     Active Substance: LACTULOSE
     Indication: Constipation
     Dosage: 1.7 GM (ORAL SYRUP)
  4. LACTULOSE [Concomitant]
     Active Substance: LACTULOSE
     Indication: Impaired gastric emptying
     Dosage: 1.67 GRAM, BID
  5. LACTULOSE [Concomitant]
     Active Substance: LACTULOSE
     Dosage: (10 G/15 ML) 2.5 MILLILITER, BID (SOLUTION)
     Dates: start: 2023
  6. SENNA S [Concomitant]
     Active Substance: DOCUSATE SODIUM\SENNA LEAF
     Indication: Constipation
     Dosage: 4.4 MG, BID (SYRUP)
  7. SENNA S [Concomitant]
     Active Substance: DOCUSATE SODIUM\SENNA LEAF
     Indication: Impaired gastric emptying
     Dosage: (8.8 MG/5 ML) 2.5 MILLILITER, BID
     Dates: start: 2023
  8. SENNA S [Concomitant]
     Active Substance: DOCUSATE SODIUM\SENNA LEAF
     Dosage: 8.6 MG-50MG TABLET
  9. NADOLOL [Concomitant]
     Active Substance: NADOLOL
     Indication: Long QT syndrome
     Dosage: 10 MILLIGRAM, QD
     Dates: start: 2023
  10. NADOLOL [Concomitant]
     Active Substance: NADOLOL
     Dosage: 10 MILLIGRAM, QD
     Route: 048
  11. NADOLOL [Concomitant]
     Active Substance: NADOLOL
     Dosage: 20 MG, UNK (TABLET)
     Dates: start: 20230914
  12. LEVOCARNITINE [Concomitant]
     Active Substance: LEVOCARNITINE
     Indication: Propionic acidaemia
     Dosage: 250 MILLIGRAM, BID
     Dates: start: 2020
  13. LEVOCARNITINE [Concomitant]
     Active Substance: LEVOCARNITINE
     Dosage: INCREASED DOSE (790 MG/UPB PER 8 HRS)
  14. LEVOCARNITINE [Concomitant]
     Active Substance: LEVOCARNITINE
     Dosage: 2.5 ML, BID (100 MG/ML) ORAL SOLUTION
     Dates: start: 20240228
  15. CALCIUM CARBONATE [Concomitant]
     Active Substance: CALCIUM CARBONATE
     Indication: Gastrooesophageal reflux disease
     Dosage: 625 MG, PRN
     Dates: start: 2024
  16. CALCIUM GLUCONATE [Concomitant]
     Active Substance: CALCIUM GLUCONATE
     Indication: Product used for unknown indication
     Dosage: 100 MG/ML, UNK (VIAL)
  17. CYPROHEPTADINE HYDROCHLORIDE [Concomitant]
     Active Substance: CYPROHEPTADINE HYDROCHLORIDE
     Indication: Impaired gastric emptying
     Dosage: 2 MILLIGRAM, BID
     Dates: start: 202402, end: 2024
  18. CYPROHEPTADINE HYDROCHLORIDE [Concomitant]
     Active Substance: CYPROHEPTADINE HYDROCHLORIDE
     Dosage: 4 MG, PRN (AS NEEDED, TABLET)
     Dates: start: 20240328
  19. HEPARIN SODIUM [Concomitant]
     Active Substance: HEPARIN SODIUM
     Indication: Product used for unknown indication
     Dosage: 100/ML (1) SYRINGE

REACTIONS (5)
  - Gastroenteritis viral [Recovered/Resolved]
  - Staphylococcal infection [Recovered/Resolved]
  - Hyperammonaemia [Recovering/Resolving]
  - Vomiting [Unknown]
  - Adenovirus infection [Unknown]

NARRATIVE: CASE EVENT DATE: 20240218
